FAERS Safety Report 8826572 (Version 2)
Quarter: 2013Q2

REPORT INFORMATION
  Report Type: Spontaneous
  Country: JP (occurrence: JP)
  Receive Date: 20121005
  Receipt Date: 20130419
  Transmission Date: 20140414
  Serious: Yes (Hospitalization)
  Sender: FDA-Public Use
  Company Number: PHHY2012JP084564

PATIENT
  Age: 70 Year
  Sex: Female

DRUGS (3)
  1. METHOTREXATE [Suspect]
     Dosage: 8 MG PER WEEK
  2. PREDNISOLONE [Concomitant]
     Dosage: 5 MG, UNK
  3. INFLIXIMAB [Concomitant]
     Indication: RHEUMATOID ARTHRITIS
     Dosage: 4 MG/KG, EVERY 8 WEEKS

REACTIONS (7)
  - Disseminated intravascular coagulation [Not Recovered/Not Resolved]
  - Histiocytosis haematophagic [Unknown]
  - Epstein-Barr virus infection [Unknown]
  - Tuberculosis [Unknown]
  - Pancytopenia [Unknown]
  - Renal impairment [Unknown]
  - Pyrexia [Not Recovered/Not Resolved]
